FAERS Safety Report 6071264-6 (Version None)
Quarter: 2009Q1

REPORT INFORMATION
  Report Type: 
  Country: None (occurrence: None)
  Receive Date: 20090204
  Receipt Date: 20090127
  Transmission Date: 20090719
  Serious: Yes (Death, Other)
  Sender: FDA-Public Use
  Company Number: 2009JP000469

PATIENT
  Age: 55 Year
  Sex: Male

DRUGS (3)
  1. PROGRAF [Suspect]
     Indication: STEM CELL TRANSPLANT
     Dosage: /D,
  2. GANCICLOVIR [Concomitant]
  3. FOSCARNET [Concomitant]

REACTIONS (6)
  - CARDIAC ARREST [None]
  - CYTOMEGALOVIRUS DUODENITIS [None]
  - ELECTROCARDIOGRAM ST SEGMENT ELEVATION [None]
  - HAEMATURIA [None]
  - PYREXIA [None]
  - VIRAL MYOCARDITIS [None]
